FAERS Safety Report 23370031 (Version 1)
Quarter: 2024Q1

REPORT INFORMATION
  Report Type: Spontaneous
  Country: US (occurrence: None)
  Receive Date: 20240102
  Receipt Date: 20240102
  Transmission Date: 20240410
  Serious: Yes (Hospitalization)
  Sender: FDA-Public Use
  Company Number: None

PATIENT
  Age: 68 Year
  Sex: Female
  Weight: 61.3 kg

DRUGS (20)
  1. FEDRATINIB [Suspect]
     Active Substance: FEDRATINIB
     Dosage: ?300MG DAILY ORAL
     Route: 048
     Dates: start: 20231208
  2. ACYCLOVIR [Concomitant]
     Active Substance: ACYCLOVIR
  3. Carbamide perox 6.5% solution [Concomitant]
  4. MIRALAX [Concomitant]
     Active Substance: POLYETHYLENE GLYCOL 3350
  5. DULOXETINE [Concomitant]
     Active Substance: DULOXETINE
  6. LACTULOSE [Concomitant]
     Active Substance: LACTULOSE
  7. LORATADINE [Concomitant]
     Active Substance: LORATADINE
  8. OLANZAPINE [Concomitant]
     Active Substance: OLANZAPINE
  9. ONDANSETRON [Concomitant]
     Active Substance: ONDANSETRON
  10. SIROLIMUS [Concomitant]
     Active Substance: SIROLIMUS
  11. SIROLIMUS [Concomitant]
     Active Substance: SIROLIMUS
  12. SIROLIMUS [Concomitant]
     Active Substance: SIROLIMUS
  13. CEFEPIME [Concomitant]
     Active Substance: CEFEPIME HYDROCHLORIDE
  14. URSODIOL [Concomitant]
     Active Substance: URSODIOL
  15. VANCOMYCIN [Concomitant]
     Active Substance: VANCOMYCIN
  16. BENZONATATE [Concomitant]
     Active Substance: BENZONATATE
  17. Docusate-senna [Concomitant]
  18. eye lubricant (Refresh) soln PF [Concomitant]
  19. GUAIFENESIN [Concomitant]
     Active Substance: GUAIFENESIN
  20. OXYCODONE [Concomitant]
     Active Substance: OXYCODONE

REACTIONS (1)
  - Organising pneumonia [None]

NARRATIVE: CASE EVENT DATE: 20231215
